FAERS Safety Report 8961519 (Version 1)
Quarter: 2012Q4

REPORT INFORMATION
  Report Type: 
  Country: US (occurrence: US)
  Receive Date: 20121213
  Receipt Date: 20121213
  Transmission Date: 20130627
  Serious: Yes (Hospitalization)
  Sender: FDA-Public Use
  Company Number: US-BAYER-2012-129724

PATIENT
  Age: 38 Year
  Sex: Female
  Weight: 54.42 kg

DRUGS (9)
  1. YAZ [Suspect]
     Dosage: UNK
     Dates: start: 20120629, end: 20121001
  2. TYLENOL [NUMBER] 3 [Concomitant]
     Dosage: 2 tablets every 6 hours as needed
     Route: 048
  3. ALBUTEROL [Concomitant]
     Dosage: 1 puff(s), UNK
     Route: 045
  4. CLARINEX [Concomitant]
     Dosage: 5 mg, daily
     Route: 048
  5. MOBIC [Concomitant]
     Dosage: 15 mg, daily
     Route: 048
  6. VALTREX [Concomitant]
     Dosage: 500 mg, daily
     Route: 048
     Dates: start: 20120611, end: 20120913
  7. SINGULAIR [Concomitant]
     Dosage: 10 mg, HS
     Route: 048
     Dates: start: 20120925
  8. VIBRAMYCIN [Concomitant]
     Dosage: 100 mg, BID
     Route: 048
     Dates: start: 20120927, end: 20121001
  9. PAXIL [Concomitant]
     Dosage: 30 mg, daily
     Route: 048
     Dates: start: 20120809, end: 20121002

REACTIONS (2)
  - Pulmonary embolism [Recovering/Resolving]
  - Deep vein thrombosis [None]
